FAERS Safety Report 21867583 (Version 6)
Quarter: 2025Q2

REPORT INFORMATION
  Report Type: Spontaneous
  Country: US (occurrence: US)
  Receive Date: 20230116
  Receipt Date: 20250606
  Transmission Date: 20250716
  Serious: No
  Sender: AMGEN
  Company Number: US-AMGEN-USASP2023005745

PATIENT
  Sex: Female

DRUGS (3)
  1. OTEZLA [Suspect]
     Active Substance: APREMILAST
     Indication: Psoriasis
     Dosage: 30 MILLIGRAM, BID
     Route: 048
     Dates: start: 20210710
  2. DUPIXENT [Concomitant]
     Active Substance: DUPILUMAB
     Route: 065
  3. LEVOTHYROXINE [Concomitant]
     Active Substance: LEVOTHYROXINE

REACTIONS (5)
  - Therapy non-responder [Unknown]
  - Product dose omission issue [Unknown]
  - Product use issue [Unknown]
  - Sleep disorder due to a general medical condition [Unknown]
  - Psoriasis [Unknown]
